FAERS Safety Report 14898506 (Version 1)
Quarter: 2018Q2

REPORT INFORMATION
  Report Type: Spontaneous
  Country: CL (occurrence: CL)
  Receive Date: 20180515
  Receipt Date: 20180515
  Transmission Date: 20180711
  Serious: Yes (Other)
  Sender: FDA-Public Use
  Company Number: CL-MYLANLABS-2018M1029110

PATIENT
  Age: 9 Year

DRUGS (1)
  1. METHYLPHENIDATE. [Suspect]
     Active Substance: METHYLPHENIDATE
     Indication: ATTENTION DEFICIT/HYPERACTIVITY DISORDER
     Dosage: IN THE MORNING AND IN THE AFTERNOON
     Route: 065

REACTIONS (3)
  - Delirium [Recovering/Resolving]
  - Substance-induced psychotic disorder [Recovering/Resolving]
  - Inappropriate schedule of drug administration [Recovering/Resolving]
